FAERS Safety Report 7564772-X (Version None)
Quarter: 2011Q2

REPORT INFORMATION
  Report Type: 
  Country: None (occurrence: None)
  Receive Date: 20110622
  Receipt Date: 20110124
  Transmission Date: 20111010
  Serious: Yes (Death)
  Sender: FDA-Public Use
  Company Number: US-MYLANLABS-2010S1020668

PATIENT
  Age: 46 Year
  Sex: Male
  Weight: 163.3 kg

DRUGS (1)
  1. CLOZAPINE [Suspect]
     Dates: start: 20040504, end: 20101013

REACTIONS (2)
  - PNEUMONIA [None]
  - ACUTE RESPIRATORY FAILURE [None]
